FAERS Safety Report 24220067 (Version 1)
Quarter: 2024Q3

REPORT INFORMATION
  Report Type: Spontaneous
  Country: US (occurrence: US)
  Receive Date: 20240817
  Receipt Date: 20240817
  Transmission Date: 20241017
  Serious: Yes (Other)
  Sender: AUROBINDO
  Company Number: US-MLMSERVICE-20240703-PI117790-00249-1

PATIENT
  Age: 59 Year
  Sex: Male

DRUGS (4)
  1. GABAPENTIN [Suspect]
     Active Substance: GABAPENTIN
     Indication: Abdominal pain
     Dosage: 300 MILLIGRAM, 3 TIMES A DAY (600MG DOSES)
     Route: 065
  2. GABAPENTIN [Suspect]
     Active Substance: GABAPENTIN
     Indication: Neuropathy peripheral
  3. OXALIPLATIN [Suspect]
     Active Substance: OXALIPLATIN
     Indication: Rectal adenocarcinoma
     Dosage: UNK
     Route: 065
  4. FLUOROURACIL [Suspect]
     Active Substance: FLUOROURACIL
     Indication: Rectal adenocarcinoma
     Dosage: UNK
     Route: 065

REACTIONS (4)
  - Neuropathy peripheral [Recovered/Resolved]
  - Treatment noncompliance [Unknown]
  - Intentional product misuse [Unknown]
  - Drug ineffective [Unknown]
